FAERS Safety Report 24539003 (Version 1)
Quarter: 2024Q4

REPORT INFORMATION
  Report Type: Spontaneous
  Country: SA (occurrence: SA)
  Receive Date: 20241023
  Receipt Date: 20241023
  Transmission Date: 20250115
  Serious: Yes (Hospitalization)
  Sender: MANKIND PHARMA
  Company Number: SA-MankindUS-000268

PATIENT
  Age: 62 Year
  Sex: Male

DRUGS (4)
  1. GLYCOPYRROLATE [Suspect]
     Active Substance: GLYCOPYRROLATE
     Indication: Increased bronchial secretion
     Dosage: SUBCUTANEOUSLY (SC) OR INTRAVENOUSLY (IV)
  2. TRAMADOL [Concomitant]
     Active Substance: TRAMADOL
     Indication: Neck pain
  3. METOCLOPRAMIDE [Concomitant]
     Active Substance: METOCLOPRAMIDE
     Indication: Nausea
  4. SENNA [Concomitant]
     Active Substance: SENNA LEAF\SENNOSIDES\SENNOSIDES A AND B
     Indication: Constipation

REACTIONS (1)
  - Face oedema [Recovered/Resolved]
